FAERS Safety Report 9555848 (Version 1)
Quarter: 2013Q3

REPORT INFORMATION
  Report Type: Spontaneous
  Country: US (occurrence: US)
  Receive Date: 20130926
  Receipt Date: 20130926
  Transmission Date: 20140515
  Serious: Yes (Other)
  Sender: FDA-Public Use
  Company Number: US-BAYER-2013-115433

PATIENT
  Sex: Male

DRUGS (1)
  1. PHILLIPS^ MILK OF MAGNESIA [Suspect]
     Indication: CONSTIPATION
     Dosage: 2 TBSP, BID
     Route: 048
     Dates: start: 2012

REACTIONS (5)
  - Urinary retention [None]
  - Flatulence [None]
  - Drug ineffective [None]
  - Incorrect drug administration duration [None]
  - Faeces soft [None]
